FAERS Safety Report 5020445-9 (Version None)
Quarter: 2006Q2

REPORT INFORMATION
  Report Type: 
  Country: None (occurrence: None)
  Receive Date: 20060531
  Receipt Date: 20060510
  Transmission Date: 20061013
  Serious: Yes (Other)
  Sender: FDA-Public Use
  Company Number: WAES 0511USA04454

PATIENT
  Sex: 0

DRUGS (1)
  1. DECADRON [Suspect]
     Indication: LUNG DISORDER
     Dosage: 0.5 MG/KG/DAILY

REACTIONS (1)
  - PERIVENTRICULAR LEUKOMALACIA [None]
